FAERS Safety Report 21260657 (Version 1)
Quarter: 2022Q3

REPORT INFORMATION
  Report Type: Spontaneous
  Country: DE (occurrence: DE)
  Receive Date: 20220826
  Receipt Date: 20220826
  Transmission Date: 20221026
  Serious: Yes (Other)
  Sender: FDA-Public Use
  Company Number: DE-NOVARTISPH-NVSC2022DE188870

PATIENT
  Age: 63 Year
  Sex: Female

DRUGS (4)
  1. CERITINIB [Suspect]
     Active Substance: CERITINIB
     Indication: Lung neoplasm malignant
     Dosage: UNK
     Route: 065
     Dates: start: 201603, end: 2016
  2. CERITINIB [Suspect]
     Active Substance: CERITINIB
     Dosage: UNK
     Route: 065
     Dates: end: 201705
  3. CERITINIB [Suspect]
     Active Substance: CERITINIB
     Dosage: UNK
     Route: 065
  4. CERITINIB [Suspect]
     Active Substance: CERITINIB
     Dosage: UNK
     Route: 065
     Dates: end: 201806

REACTIONS (18)
  - Leukopenia [Unknown]
  - Metastases to central nervous system [Unknown]
  - Amaurosis [Unknown]
  - Renal impairment [Unknown]
  - Hepatitis [Unknown]
  - General physical condition abnormal [Unknown]
  - Night sweats [Unknown]
  - Head discomfort [Unknown]
  - Visual impairment [Unknown]
  - Hypoacusis [Unknown]
  - Hepatic enzyme increased [Unknown]
  - Headache [Unknown]
  - Diarrhoea [Unknown]
  - Myalgia [Unknown]
  - Pyrexia [Unknown]
  - Weight decreased [Unknown]
  - Asthenia [Unknown]
  - Fatigue [Unknown]

NARRATIVE: CASE EVENT DATE: 20160101
